FAERS Safety Report 6993675-4 (Version None)
Quarter: 2010Q3

REPORT INFORMATION
  Report Type: 
  Country: None (occurrence: None)
  Receive Date: 20100917
  Receipt Date: 20070620
  Transmission Date: 20110219
  Serious: Yes (Other)
  Sender: FDA-Public Use
  Company Number: US-ASTRAZENECA-2006UW24103

PATIENT
  Age: 26 Year
  Sex: Female
  Weight: 55.8 kg

DRUGS (16)
  1. SEROQUEL [Suspect]
     Indication: SCHIZOPHRENIA
     Route: 048
     Dates: start: 19980113, end: 19980301
  2. HALDOL [Concomitant]
  3. NAVANE [Concomitant]
  4. RISPERDAL [Concomitant]
     Dates: start: 19970101
  5. STELAZINE [Concomitant]
  6. THORAZINE [Concomitant]
  7. TRILAFON [Concomitant]
  8. ZYPREXA [Concomitant]
     Dates: start: 19971110
  9. ZOLOFT [Concomitant]
     Dates: start: 19970928
  10. ALBUTEROL [Concomitant]
     Dates: start: 19970928
  11. PRILOSEC [Concomitant]
     Dates: start: 19970928
  12. COGENTIN [Concomitant]
     Dates: start: 19970101
  13. ATIVAN [Concomitant]
     Dosage: 0.5 MG TWO TIMES A DAY, 0.5MG THREE TIMES A DAY
     Dates: start: 19980113
  14. DOXEPIN HCL [Concomitant]
     Dates: start: 19990101
  15. DAYPRO [Concomitant]
     Dosage: 600MG, START WITH TWO TABLET AT ONCE THEN ONE TWO TIMES A DAY
     Route: 048
     Dates: start: 20030101
  16. ULTRAM [Concomitant]
     Indication: PAIN
     Dosage: 50MG, ONE OR TWO TABLETS EVERY SIX HOURLY AS NEEDED
     Dates: start: 20031011

REACTIONS (2)
  - PANCREATITIS [None]
  - PANCREATITIS ACUTE [None]
